FAERS Safety Report 16780694 (Version 1)
Quarter: 2019Q3

REPORT INFORMATION
  Report Type: Report from Study
  Country: TR (occurrence: TR)
  Receive Date: 20190906
  Receipt Date: 20190906
  Transmission Date: 20191005
  Serious: Yes (Hospitalization)
  Sender: FDA-Public Use
  Company Number: TR-BAYER-2019-126229

PATIENT
  Sex: Male
  Weight: 63.4 kg

DRUGS (21)
  1. BENDAMUSTINE [Suspect]
     Active Substance: BENDAMUSTINE
     Indication: NON-HODGKIN^S LYMPHOMA
     Dosage: 90 MG/M2, Q4WK
     Route: 042
     Dates: start: 20190821, end: 20190821
  2. PAROL [Concomitant]
     Active Substance: ACETAMINOPHEN
     Indication: PREMEDICATION
     Dosage: 500 MG, ONCE
     Route: 048
     Dates: start: 20190620, end: 20190620
  3. COPANLISIB. [Suspect]
     Active Substance: COPANLISIB
     Indication: NON-HODGKIN^S LYMPHOMA
     Dosage: 60 MG, ONCE
     Route: 042
     Dates: start: 20190627, end: 20190627
  4. COPANLISIB. [Suspect]
     Active Substance: COPANLISIB
     Indication: NON-HODGKIN^S LYMPHOMA
     Dosage: 60 MG, ONCE
     Route: 042
     Dates: start: 20190821, end: 20190821
  5. BENDAMUSTINE [Suspect]
     Active Substance: BENDAMUSTINE
     Indication: NON-HODGKIN^S LYMPHOMA
     Dosage: 90 MG/M2, Q4WK
     Route: 042
     Dates: start: 20190822, end: 20190822
  6. COPANLISIB. [Suspect]
     Active Substance: COPANLISIB
     Indication: NON-HODGKIN^S LYMPHOMA
     Dosage: 60 MG, ONCE
     Route: 042
     Dates: start: 20190724, end: 20190724
  7. BENDAMUSTINE [Suspect]
     Active Substance: BENDAMUSTINE
     Indication: NON-HODGKIN^S LYMPHOMA
     Dosage: 90 MG/M2, Q4WK
     Route: 042
     Dates: start: 20190621, end: 20190621
  8. BENDAMUSTINE [Suspect]
     Active Substance: BENDAMUSTINE
     Indication: NON-HODGKIN^S LYMPHOMA
     Dosage: 90 MG/M2, Q4WK
     Route: 042
     Dates: start: 20190718, end: 20190718
  9. RITUXIMAB. [Suspect]
     Active Substance: RITUXIMAB
     Indication: NON-HODGKIN^S LYMPHOMA
     Dosage: 375 MG/M2, Q4WK
     Route: 042
     Dates: start: 20190620, end: 20190620
  10. BENDAMUSTINE [Suspect]
     Active Substance: BENDAMUSTINE
     Indication: NON-HODGKIN^S LYMPHOMA
     Dosage: 90 MG/M2, ONCE
     Route: 042
     Dates: start: 20190620, end: 20190620
  11. KYTRIL [Concomitant]
     Active Substance: GRANISETRON HYDROCHLORIDE
     Indication: NAUSEA
     Dosage: 3 MG, ONCE
     Route: 042
     Dates: start: 20190620, end: 20190620
  12. RITUXIMAB. [Suspect]
     Active Substance: RITUXIMAB
     Indication: NON-HODGKIN^S LYMPHOMA
     Dosage: 375 MG/M2, Q4WK
     Route: 042
     Dates: start: 20190717, end: 20190717
  13. COPANLISIB. [Suspect]
     Active Substance: COPANLISIB
     Indication: NON-HODGKIN^S LYMPHOMA
     Dosage: 60 MG, ONCE
     Route: 042
     Dates: start: 20190717, end: 20190717
  14. RED BLOOD CELLS [Concomitant]
     Active Substance: HUMAN RED BLOOD CELL
     Indication: ANAEMIA
     Dosage: 2 UNITS
     Dates: start: 20190628, end: 20190628
  15. KYTRIL [Concomitant]
     Active Substance: GRANISETRON HYDROCHLORIDE
     Indication: NAUSEA
     Dosage: 2 MG, QD
     Route: 048
     Dates: start: 20190624, end: 20190701
  16. COPANLISIB. [Suspect]
     Active Substance: COPANLISIB
     Indication: NON-HODGKIN^S LYMPHOMA
     Dosage: 60 MG, ONCE
     Route: 042
     Dates: start: 20190620, end: 20190620
  17. COPANLISIB. [Suspect]
     Active Substance: COPANLISIB
     Indication: NON-HODGKIN^S LYMPHOMA
     Dosage: 60 MG, ONCE
     Route: 042
     Dates: start: 20190731, end: 20190731
  18. RITUXIMAB. [Suspect]
     Active Substance: RITUXIMAB
     Indication: NON-HODGKIN^S LYMPHOMA
     Dosage: 375 MG/M2, Q4WK
     Route: 042
     Dates: start: 20190821, end: 20190821
  19. DEKORT [DEXAMETHASONE SODIUM PHOSPHATE] [Concomitant]
     Indication: PREMEDICATION
     Dosage: 8 MG, ONCE
     Dates: start: 20190620, end: 20190620
  20. AVIL [PHENIRAMINE AMINOSALICYLATE] [Concomitant]
     Indication: PREMEDICATION
     Dosage: 45.5 MG, ONCE
     Route: 042
     Dates: start: 20190620, end: 20190620
  21. BENDAMUSTINE [Suspect]
     Active Substance: BENDAMUSTINE
     Indication: NON-HODGKIN^S LYMPHOMA
     Dosage: 90 MG/M2, Q4WK
     Route: 042
     Dates: start: 20190717, end: 20190717

REACTIONS (1)
  - Viraemia [Recovered/Resolved]

NARRATIVE: CASE EVENT DATE: 20190701
